FAERS Safety Report 23339957 (Version 1)
Quarter: 2023Q4

REPORT INFORMATION
  Report Type: Report from Study
  Country: US (occurrence: US)
  Receive Date: 20231226
  Receipt Date: 20231226
  Transmission Date: 20240109
  Serious: Yes (Other)
  Sender: FDA-Public Use
  Company Number: US-ABBVIE-4763889

PATIENT
  Sex: Female
  Weight: 23 kg

DRUGS (1)
  1. IMBRUVICA [Suspect]
     Active Substance: IBRUTINIB
     Indication: Marginal zone lymphoma
     Route: 048
     Dates: start: 20211001, end: 202303

REACTIONS (6)
  - Haemoglobin decreased [Unknown]
  - Therapeutic product effect decreased [Unknown]
  - Full blood count abnormal [Not Recovered/Not Resolved]
  - Anaemia [Unknown]
  - Marginal zone lymphoma [Unknown]
  - Aplasia pure red cell [Unknown]
